FAERS Safety Report 23598019 (Version 1)
Quarter: 2024Q1

REPORT INFORMATION
  Report Type: Spontaneous
  Country: US (occurrence: US)
  Receive Date: 20240305
  Receipt Date: 20240305
  Transmission Date: 20240409
  Serious: Yes (Hospitalization, Other)
  Sender: FDA-Public Use
  Company Number: US-BAUSCH-BL-2024-003349

PATIENT
  Age: 61 Year
  Sex: Female

DRUGS (7)
  1. LORAZEPAM [Suspect]
     Active Substance: LORAZEPAM
     Indication: Product used for unknown indication
     Route: 065
     Dates: start: 2022
  2. LORAZEPAM [Suspect]
     Active Substance: LORAZEPAM
     Dosage: TAKING AN INCREASED DOSAGE OVER LAST MONTH
     Route: 065
     Dates: start: 2023
  3. LORAZEPAM [Suspect]
     Active Substance: LORAZEPAM
     Dosage: DECREASED LORAZEPAM DOSE ON 05/FEB/2024 (MONDAY).
     Route: 065
     Dates: start: 20240205
  4. GEODON [Suspect]
     Active Substance: ZIPRASIDONE HYDROCHLORIDE\ZIPRASIDONE MESYLATE
     Indication: Product used for unknown indication
     Dosage: GEODON
     Route: 065
  5. INGREZZA [Suspect]
     Active Substance: VALBENAZINE
     Indication: Tardive dyskinesia
     Route: 065
  6. SEROQUEL [Suspect]
     Active Substance: QUETIAPINE FUMARATE
     Indication: Product used for unknown indication
     Route: 065
  7. TRAZODONE [Suspect]
     Active Substance: TRAZODONE HYDROCHLORIDE
     Indication: Product used for unknown indication
     Route: 065

REACTIONS (7)
  - Mental status changes [Not Recovered/Not Resolved]
  - Restlessness [Not Recovered/Not Resolved]
  - Tardive dyskinesia [Not Recovered/Not Resolved]
  - Bipolar disorder [Not Recovered/Not Resolved]
  - Anxiety [Not Recovered/Not Resolved]
  - Parkinsonism [Unknown]
  - Fall [Recovered/Resolved]
